FAERS Safety Report 8791132 (Version 1)
Quarter: 2012Q4

REPORT INFORMATION
  Report Type: Spontaneous
  Country: None (occurrence: None)
  Receive Date: 20120912
  Receipt Date: 20120913
  Transmission Date: 20130627
  Serious: Yes (Other)
  Sender: FDA-Public Use
  Company Number: AUR-APL-2012-03836

PATIENT
  Age: 50 Year
  Sex: Male

DRUGS (6)
  1. METFORMIN (METFORMIN) [Suspect]
     Indication: DIABETES
     Route: 048
     Dates: start: 19980514, end: 20030207
  2. BECONASE AQUEOUS (BECLOMETASONE DIPROPIONATE) [Concomitant]
  3. CANDESARTAN (CANDESARTAN) [Concomitant]
  4. QUININE SULPHATE (QUININE SULFATE) [Concomitant]
  5. SIMVASTATIN (SIMVASTATIN) [Concomitant]
  6. VITAMIN AND MINERAL SUPPLEMENT (VITAMINS WITH MINERALS) [Concomitant]

REACTIONS (6)
  - Decreased appetite [None]
  - Abdominal distension [None]
  - Diarrhoea [None]
  - Abdominal pain upper [None]
  - Myocardial infarction [None]
  - Weight increased [None]
